FAERS Safety Report 24760006 (Version 1)
Quarter: 2024Q4

REPORT INFORMATION
  Report Type: Spontaneous
  Country: US (occurrence: US)
  Receive Date: 20241220
  Receipt Date: 20241220
  Transmission Date: 20250115
  Serious: No
  Sender: PHARMING GROUP
  Company Number: US-PHARMING-PHAUS2024001230

PATIENT

DRUGS (5)
  1. JOENJA [Suspect]
     Active Substance: LENIOLISIB PHOSPHATE
     Indication: Activated PI3 kinase delta syndrome
     Dosage: 70 MILLIGRAM, BID
     Route: 048
     Dates: start: 20230526
  2. ASPIRIN [Concomitant]
     Active Substance: ASPIRIN
     Indication: Product used for unknown indication
     Route: 048
  3. HIZENTRA [Concomitant]
     Active Substance: HUMAN IMMUNOGLOBULIN G
     Indication: Product used for unknown indication
     Route: 058
  4. METOPROLOL TARTRATE [Concomitant]
     Active Substance: METOPROLOL TARTRATE
     Indication: Product used for unknown indication
     Route: 048
  5. WARFARIN SODIUM [Concomitant]
     Active Substance: WARFARIN SODIUM
     Indication: Product used for unknown indication
     Route: 048

REACTIONS (1)
  - Nasopharyngitis [Not Recovered/Not Resolved]
